FAERS Safety Report 10832181 (Version 2)
Quarter: 2015Q1

REPORT INFORMATION
  Report Type: Spontaneous
  Country: TW (occurrence: TW)
  Receive Date: 20150219
  Receipt Date: 20150318
  Transmission Date: 20150721
  Serious: Yes (Hospitalization)
  Sender: FDA-Public Use
  Company Number: TW-BAXTER-2015BAX007962

PATIENT
  Age: 4 Month
  Sex: Male
  Weight: 5.3 kg

DRUGS (4)
  1. CEPROTIN [Suspect]
     Active Substance: PROTEIN C
     Route: 058
  2. CEPROTIN [Suspect]
     Active Substance: PROTEIN C
     Dosage: 2 VIALS EVERY 6 HOURS
     Route: 058
  3. CEPROTIN [Suspect]
     Active Substance: PROTEIN C
     Dosage: 6 VIALS PER CONT. DRIP
     Route: 058
  4. CEPROTIN [Suspect]
     Active Substance: PROTEIN C
     Indication: PROTEIN C DEFICIENCY
     Dosage: 10 HRS VIA PUMP
     Route: 058

REACTIONS (2)
  - Sepsis [Recovering/Resolving]
  - Condition aggravated [Recovering/Resolving]
